FAERS Safety Report 9924993 (Version 1)
Quarter: 2014Q1

REPORT INFORMATION
  Report Type: Spontaneous
  Country: US (occurrence: None)
  Receive Date: 20140224
  Receipt Date: 20140224
  Transmission Date: 20141002
  Serious: Yes (Life-Threatening)
  Sender: FDA-Public Use
  Company Number: None

PATIENT
  Sex: Female

DRUGS (1)
  1. MIRENA [Suspect]

REACTIONS (11)
  - Local swelling [None]
  - Trismus [None]
  - Breast tenderness [None]
  - Menorrhagia [None]
  - Oligomenorrhoea [None]
  - Back pain [None]
  - Infection [None]
  - Bacterial test positive [None]
  - Autoimmune disorder [None]
  - Inflammation [None]
  - Depression [None]
